FAERS Safety Report 7682506-5 (Version None)
Quarter: 2011Q3

REPORT INFORMATION
  Report Type: 
  Country: None (occurrence: None)
  Receive Date: 20110815
  Receipt Date: 20110810
  Transmission Date: 20111222
  Serious: Yes (Death, Other)
  Sender: FDA-Public Use
  Company Number: PHEH2010US03509

PATIENT
  Sex: Male

DRUGS (1)
  1. ZOMETA [Suspect]

REACTIONS (8)
  - PAIN [None]
  - INFECTION [None]
  - OVERDOSE [None]
  - PARTNER STRESS [None]
  - DEFORMITY [None]
  - PROSTATE CANCER METASTATIC [None]
  - CARPAL TUNNEL SYNDROME [None]
  - OSTEONECROSIS OF JAW [None]
